FAERS Safety Report 4426588-2 (Version None)
Quarter: 2004Q3

REPORT INFORMATION
  Report Type: 
  Country: None (occurrence: None)
  Receive Date: 20040816
  Receipt Date: 20040624
  Transmission Date: 20050211
  Serious: Yes (Hospitalization)
  Sender: FDA-Public Use
  Company Number: DE-AMGEN-UK081319

PATIENT
  Sex: Female
  Weight: 78 kg

DRUGS (4)
  1. ARANESP [Suspect]
     Indication: ANAEMIA OF MALIGNANT DISEASE
     Route: 065
     Dates: start: 20040427
  2. TAXOTERE [Concomitant]
     Route: 042
     Dates: start: 20040427
  3. ADRIAMYCIN PFS [Concomitant]
     Route: 042
     Dates: start: 20040427
  4. CYCLOPHOSPHAMIDE [Concomitant]
     Route: 065
     Dates: start: 20040427

REACTIONS (3)
  - ARTERIAL OCCLUSIVE DISEASE [None]
  - EMBOLISM [None]
  - GANGRENE [None]
